FAERS Safety Report 23348358 (Version 1)
Quarter: 2023Q4

REPORT INFORMATION
  Report Type: Spontaneous
  Country: FR (occurrence: FR)
  Receive Date: 20231228
  Receipt Date: 20231228
  Transmission Date: 20240110
  Serious: Yes (Hospitalization)
  Sender: FDA-Public Use
  Company Number: None

PATIENT
  Age: 65 Year
  Sex: Female

DRUGS (3)
  1. VELCADE [Suspect]
     Active Substance: BORTEZOMIB
     Indication: Plasma cell myeloma
     Route: 042
     Dates: start: 202306, end: 20231102
  2. DARZALEX [Suspect]
     Active Substance: DARATUMUMAB
     Indication: Plasma cell myeloma
     Route: 042
     Dates: start: 202306, end: 20231030
  3. RILTOZINAMERAN\TOZINAMERAN [Suspect]
     Active Substance: RILTOZINAMERAN\TOZINAMERAN
     Indication: COVID-19 immunisation
     Dosage: RUNK
     Route: 030
     Dates: start: 20231027, end: 20231027

REACTIONS (2)
  - Motor dysfunction [Recovering/Resolving]
  - Polyneuropathy [Recovering/Resolving]

NARRATIVE: CASE EVENT DATE: 20231111
